FAERS Safety Report 14342417 (Version 2)
Quarter: 2018Q1

REPORT INFORMATION
  Report Type: Spontaneous
  Country: GB (occurrence: FR)
  Receive Date: 20180102
  Receipt Date: 20180302
  Transmission Date: 20180509
  Serious: Yes (Other)
  Sender: FDA-Public Use
  Company Number: FR-FRESENIUS KABI-FK201711593

PATIENT
  Age: 42 Year
  Sex: Female

DRUGS (19)
  1. LINEZOLID 2 MG/ML [Suspect]
     Active Substance: LINEZOLID
     Indication: SEPSIS
     Route: 042
     Dates: start: 20171012, end: 20171023
  2. IMIPENEM AND CILASTATIN [Suspect]
     Active Substance: CILASTATIN SODIUM\IMIPENEM
     Indication: SEPSIS
     Route: 042
     Dates: start: 20171022, end: 20171023
  3. BACTRIM [Concomitant]
     Active Substance: SULFAMETHOXAZOLE\TRIMETHOPRIM
  4. TOUJEO [Concomitant]
     Active Substance: INSULIN GLARGINE
     Route: 065
  5. LOXEN (NICARDIPINE HYDROCHLORIDE) [Concomitant]
     Active Substance: NICARDIPINE HYDROCHLORIDE
  6. FLUOXETINE [Concomitant]
     Active Substance: FLUOXETINE HYDROCHLORIDE
  7. OFLOCET [Suspect]
     Active Substance: OFLOXACIN
     Indication: PRODUCT USED FOR UNKNOWN INDICATION
     Route: 001
     Dates: start: 20171020
  8. HYDROXYZINE RENAUDIN [Suspect]
     Active Substance: HYDROXYZINE HYDROCHLORIDE
     Indication: ANXIETY
     Route: 042
     Dates: start: 20171020, end: 20171024
  9. METOCLOPRAMIDE. [Concomitant]
     Active Substance: METOCLOPRAMIDE
  10. HUMALOG [Concomitant]
     Active Substance: INSULIN LISPRO
  11. PARACETAMOL [Concomitant]
     Active Substance: ACETAMINOPHEN
  12. ERYTHROMYCINE [Concomitant]
     Active Substance: ERYTHROMYCIN
  13. PANTOPRAZOLE [Concomitant]
     Active Substance: PANTOPRAZOLE
  14. OLIMEL [Concomitant]
     Active Substance: AMINO ACIDS\DEXTROSE\SOYBEAN OIL
  15. CALCIPARINE [Concomitant]
     Active Substance: HEPARIN CALCIUM
  16. PREGABALINE [Concomitant]
     Active Substance: PREGABALIN
  17. SPECIAFOLDINE [Concomitant]
     Active Substance: FOLIC ACID
  18. FUROSEMIDE. [Concomitant]
     Active Substance: FUROSEMIDE
  19. CHLORHYDRATE D^AMILORIDE [Concomitant]

REACTIONS (3)
  - Eyelid myoclonus [Recovered/Resolved]
  - Epilepsy [Recovered/Resolved]
  - Loss of consciousness [Recovered/Resolved]

NARRATIVE: CASE EVENT DATE: 20171024
